FAERS Safety Report 16086045 (Version 1)
Quarter: 2019Q1

REPORT INFORMATION
  Report Type: Spontaneous
  Country: US (occurrence: US)
  Receive Date: 20190318
  Receipt Date: 20190318
  Transmission Date: 20190418
  Serious: Yes (Other)
  Sender: FDA-Public Use
  Company Number: US-GLAXOSMITHKLINE-US2019047727

PATIENT
  Age: 54 Year
  Sex: Female

DRUGS (1)
  1. PARODONTAX COMPLETE PROTECTION [Suspect]
     Active Substance: STANNOUS FLUORIDE
     Indication: DENTAL CLEANING
     Dosage: UNK

REACTIONS (2)
  - Drug dependence [Unknown]
  - Product availability issue [None]
